FAERS Safety Report 5802142-2 (Version None)
Quarter: 2008Q3

REPORT INFORMATION
  Report Type: 
  Country: None (occurrence: None)
  Receive Date: 20080707
  Receipt Date: 20080624
  Transmission Date: 20090109
  Serious: Yes (Hospitalization, Other)
  Sender: FDA-Public Use
  Company Number: GB-ROCHE-567373

PATIENT
  Sex: Male
  Weight: 51 kg

DRUGS (4)
  1. PEGASYS [Suspect]
     Route: 058
     Dates: end: 20080606
  2. RIBAVIRIN [Suspect]
     Route: 048
     Dates: end: 20080606
  3. RIBAVIRIN [Suspect]
     Route: 048
  4. VX-950 [Suspect]
     Route: 048

REACTIONS (4)
  - AGRANULOCYTOSIS [None]
  - CLOSTRIDIUM DIFFICILE COLITIS [None]
  - PNEUMONIA [None]
  - PYREXIA [None]
